FAERS Safety Report 6057560-7 (Version None)
Quarter: 2009Q1

REPORT INFORMATION
  Report Type: 
  Country: None (occurrence: None)
  Receive Date: 20090127
  Receipt Date: 20090127
  Transmission Date: 20090719
  Serious: Yes (Life-Threatening)
  Sender: FDA-Public Use
  Company Number: None

PATIENT
  Age: 69 Year
  Sex: Female

DRUGS (6)
  1. WARFARIN SODIUM [Suspect]
     Indication: DEEP VEIN THROMBOSIS
     Dosage: 7.5MG ONE TIME PO
     Route: 048
     Dates: start: 20080601, end: 20080610
  2. MOXIFLOXACIN HCL [Suspect]
     Indication: PNEUMONITIS
     Dosage: 400MG DAILY PO
     Route: 048
     Dates: start: 20080608, end: 20080608
  3. OMEPRAZOLE [Concomitant]
  4. PREDNISONE [Concomitant]
  5. MICAFUNGIN [Concomitant]
  6. MEROPENEM [Concomitant]

REACTIONS (8)
  - CATHETER RELATED COMPLICATION [None]
  - DEEP VEIN THROMBOSIS [None]
  - DIALYSIS [None]
  - DRUG INTERACTION [None]
  - HAEMOGLOBIN DECREASED [None]
  - HYPERCOAGULATION [None]
  - INTERNATIONAL NORMALISED RATIO INCREASED [None]
  - RETROPERITONEAL HAEMORRHAGE [None]
